FAERS Safety Report 6090901-3 (Version None)
Quarter: 2009Q1

REPORT INFORMATION
  Report Type: 
  Country: None (occurrence: None)
  Receive Date: 20090220
  Receipt Date: 20090209
  Transmission Date: 20090719
  Serious: No
  Sender: FDA-Public Use
  Company Number: 005545

PATIENT
  Age: 60 Year
  Sex: Male
  Weight: 72 kg

DRUGS (9)
  1. PLETAL [Suspect]
     Dosage: 50 MG, BID, ORAL
     Route: 048
     Dates: start: 20081115, end: 20090109
  2. BLOPRESS GFR (CANDESARTAN CILEXETIL) TABLET 4 MG [Suspect]
     Indication: HYPERTENSION
     Dosage: 4 MG, BID, ORAL
     Route: 048
  3. BISOPROLOL FUMARATE [Concomitant]
  4. PARIET (SODIUM RABEPRAZOLE) TABLET [Concomitant]
  5. ALLOPURINOL [Concomitant]
  6. NORVASC DEN (AMLODIPINE BESILATE) TABLET [Concomitant]
  7. ALDOMET (METHYLDOPA) TABLET [Concomitant]
  8. LASIX SWE (FUROSEMIDE) UNKNOWN [Concomitant]
  9. PRECIPITATED CALCIUM CARBONATE (PRECIPITATED CALCIUM CARBONATE) POWDER [Concomitant]

REACTIONS (1)
  - RENAL FAILURE ACUTE [None]
